FAERS Safety Report 4852115-1 (Version None)
Quarter: 2005Q4

REPORT INFORMATION
  Report Type: 
  Country: None (occurrence: None)
  Receive Date: 20051209
  Receipt Date: 20051202
  Transmission Date: 20060501
  Serious: Yes (Death, Life-Threatening, Hospitalization)
  Sender: FDA-Public Use
  Company Number: OXYA20050011

PATIENT
  Age: 86 Year
  Sex: Male

DRUGS (2)
  1. OXYCODONE/APAP [Suspect]
     Dosage: PO
     Route: 048
     Dates: start: 20040101, end: 20040101
  2. ASPIRIN [Suspect]
     Dosage: PO
     Route: 048
     Dates: start: 20040101, end: 20040101

REACTIONS (9)
  - COMPLETED SUICIDE [None]
  - CONFUSIONAL STATE [None]
  - GENERAL PHYSICAL HEALTH DETERIORATION [None]
  - HEPATIC FAILURE [None]
  - HYPONATRAEMIA [None]
  - METABOLIC ACIDOSIS [None]
  - MULTIPLE DRUG OVERDOSE [None]
  - OVERDOSE [None]
  - RESPIRATORY ALKALOSIS [None]
